FAERS Safety Report 12613502 (Version 2)
Quarter: 2016Q3

REPORT INFORMATION
  Report Type: Spontaneous
  Country: TW (occurrence: TW)
  Receive Date: 20160802
  Receipt Date: 20160810
  Transmission Date: 20161109
  Serious: Yes (Death, Other)
  Sender: FDA-Public Use
  Company Number: TW-AMGEN-TWNSP2016097152

PATIENT
  Age: 69 Year
  Sex: Male

DRUGS (1)
  1. ENBREL [Suspect]
     Active Substance: ETANERCEPT
     Indication: RHEUMATOID ARTHRITIS
     Dosage: 25 MG, 6DF PER MONTH
     Route: 058
     Dates: start: 20131209, end: 20160721

REACTIONS (4)
  - Acute respiratory failure [Unknown]
  - Death [Fatal]
  - Dyspnoea [Unknown]
  - Coma [Unknown]
